FAERS Safety Report 17900944 (Version 1)
Quarter: 2020Q2

REPORT INFORMATION
  Report Type: Spontaneous
  Country: US (occurrence: US)
  Receive Date: 20200616
  Receipt Date: 20200616
  Transmission Date: 20200714
  Serious: No
  Sender: FDA-Public Use
  Company Number: US-SA-2020SA153645

PATIENT

DRUGS (10)
  1. FISH OIL [Concomitant]
     Active Substance: FISH OIL
  2. VITAMIN D [VITAMIN D NOS] [Concomitant]
     Active Substance: VITAMIN D NOS
  3. ALBUTEROL SULFATE HFA [Concomitant]
     Active Substance: ALBUTEROL SULFATE
  4. TACROLIMUS. [Concomitant]
     Active Substance: TACROLIMUS
  5. LORATADINE. [Concomitant]
     Active Substance: LORATADINE
  6. GRAPE SEED [VITIS VINIFERA] [Concomitant]
  7. EPIPEN [Concomitant]
     Active Substance: EPINEPHRINE
  8. TURMERIC [CURCUMA LONGA] [Concomitant]
     Active Substance: HERBALS\TURMERIC
  9. DUPIXENT [Suspect]
     Active Substance: DUPILUMAB
     Indication: DERMATITIS ATOPIC
     Dosage: 600 MG, QOW
     Route: 058
     Dates: start: 20200610, end: 20200610
  10. CALCIUM 500+D [Concomitant]
     Active Substance: CALCIUM\VITAMIN D

REACTIONS (1)
  - Fatigue [Unknown]

NARRATIVE: CASE EVENT DATE: 20200611
